FAERS Safety Report 6633611-3 (Version None)
Quarter: 2010Q1

REPORT INFORMATION
  Report Type: 
  Country: None (occurrence: None)
  Receive Date: 20100312
  Receipt Date: 20100305
  Transmission Date: 20100710
  Serious: Yes (Hospitalization)
  Sender: FDA-Public Use
  Company Number: CH-MERCK-1003CHE00002

PATIENT
  Age: 79 Year
  Sex: Female
  Weight: 42 kg

DRUGS (7)
  1. PRIMAXIN [Suspect]
     Indication: PNEUMONIA
     Route: 041
     Dates: start: 20090923, end: 20091002
  2. ROCEPHIN [Suspect]
     Indication: PNEUMONIA
     Route: 041
     Dates: start: 20090920, end: 20090923
  3. PRONTOLAX (BISACODYL) [Suspect]
     Route: 048
     Dates: start: 20090908, end: 20091020
  4. REDOXON [Concomitant]
     Route: 048
     Dates: start: 20091012
  5. ASPIRIN [Concomitant]
     Route: 048
  6. TRAZODONE HCL [Concomitant]
     Route: 048
     Dates: start: 20090908
  7. TEMESTA [Concomitant]
     Route: 048
     Dates: start: 20090901, end: 20091209

REACTIONS (3)
  - BLOOD ALKALINE PHOSPHATASE INCREASED [None]
  - ERYTHEMA MULTIFORME [None]
  - GAMMA-GLUTAMYLTRANSFERASE INCREASED [None]
